FAERS Safety Report 17401956 (Version 1)
Quarter: 2020Q1

REPORT INFORMATION
  Report Type: Spontaneous
  Country: US (occurrence: US)
  Receive Date: 20200127
  Receipt Date: 20200127
  Transmission Date: 20200409
  Serious: Yes (Other)
  Sender: FDA-Public Use
  Company Number: None

PATIENT
  Age: 70 Year
  Sex: Female

DRUGS (1)
  1. TRESIBA [Suspect]
     Active Substance: INSULIN DEGLUDEC

REACTIONS (3)
  - Peripheral swelling [None]
  - Product substitution issue [None]
  - Eye swelling [None]

NARRATIVE: CASE EVENT DATE: 20200114
